FAERS Safety Report 5221822-3 (Version None)
Quarter: 2007Q1

REPORT INFORMATION
  Report Type: 
  Country: None (occurrence: None)
  Receive Date: 20070125
  Receipt Date: 20070125
  Transmission Date: 20070707
  Serious: Yes (Life-Threatening, Hospitalization)
  Sender: FDA-Public Use
  Company Number: None

PATIENT
  Age: 65 Year
  Sex: Female

DRUGS (1)
  1. ENBREL [Suspect]
     Indication: RHEUMATOID ARTHRITIS
     Dosage: 50 MG EVERY WEEK SQ
     Route: 058

REACTIONS (6)
  - BLISTER INFECTED [None]
  - INFECTION [None]
  - MUSCULOSKELETAL PAIN [None]
  - SPINAL CORD INFECTION [None]
  - STAPHYLOCOCCAL INFECTION [None]
  - TOE AMPUTATION [None]
